FAERS Safety Report 24329210 (Version 2)
Quarter: 2024Q4

REPORT INFORMATION
  Report Type: Spontaneous
  Country: CA (occurrence: CA)
  Receive Date: 20240917
  Receipt Date: 20241001
  Transmission Date: 20250114
  Serious: Yes (Other)
  Sender: PFIZER
  Company Number: CA-TAKEDA-2024TUS090994

PATIENT
  Age: 79 Year
  Sex: Female

DRUGS (14)
  1. PANTOPRAZOLE SODIUM [Suspect]
     Active Substance: PANTOPRAZOLE SODIUM
     Dosage: 40 MILLIGRAM
     Route: 065
  2. COLESTID [Suspect]
     Active Substance: COLESTIPOL HYDROCHLORIDE
     Dosage: UNK
     Route: 065
  3. ENTYVIO [Suspect]
     Active Substance: VEDOLIZUMAB
     Indication: Colitis ulcerative
     Dosage: 300 MILLIGRAM, MONTHLY
     Route: 042
  4. ENTYVIO [Suspect]
     Active Substance: VEDOLIZUMAB
     Dosage: 300 MILLIGRAM
     Route: 042
  5. ENTYVIO [Suspect]
     Active Substance: VEDOLIZUMAB
     Dosage: 300 MILLIGRAM
     Route: 042
  6. ENTYVIO [Suspect]
     Active Substance: VEDOLIZUMAB
     Dosage: 300 MILLIGRAM, MONTHLY
     Route: 042
  7. ASPIRIN [Concomitant]
     Active Substance: ASPIRIN
     Dosage: UNK
  8. ASPIRIN [Concomitant]
     Active Substance: ASPIRIN
     Dosage: 81 MILLIGRAM
  9. BUDESONIDE [Concomitant]
     Active Substance: BUDESONIDE
     Dosage: 9 MILLIGRAM
  10. CALCIUM CARBONATE\CHOLECALCIFEROL [Concomitant]
     Active Substance: CALCIUM CARBONATE\CHOLECALCIFEROL
     Dosage: UNK
  11. METOPROLOL [Concomitant]
     Active Substance: METOPROLOL
     Dosage: 25 MILLIGRAM
  12. MESALAMINE [Concomitant]
     Active Substance: MESALAMINE
     Dosage: 1.2 GRAM
  13. STELARA [Concomitant]
     Active Substance: USTEKINUMAB
     Dosage: UNK UNK, MONTHLY
     Route: 058
  14. TELMISARTAN [Concomitant]
     Active Substance: TELMISARTAN
     Dosage: 80 MILLIGRAM

REACTIONS (5)
  - Constipation [Unknown]
  - Diarrhoea [Unknown]
  - Frequent bowel movements [Unknown]
  - Haematochezia [Unknown]
  - Therapy partial responder [Unknown]
